FAERS Safety Report 20785068 (Version 1)
Quarter: 2022Q2

REPORT INFORMATION
  Report Type: Spontaneous
  Country: US (occurrence: None)
  Receive Date: 20220503
  Receipt Date: 20220503
  Transmission Date: 20220721
  Serious: Yes (Hospitalization)
  Sender: FDA-Public Use
  Company Number: None

PATIENT
  Sex: Male

DRUGS (10)
  1. FONDAPARINUX [Suspect]
     Active Substance: FONDAPARINUX
     Indication: Deep vein thrombosis
     Dosage: FREQUENCY : DAILY;?DOSE: 7.5MG/0.6ML
     Route: 058
     Dates: start: 20150915
  2. FONDAPARINUX [Suspect]
     Active Substance: FONDAPARINUX
     Indication: Embolism
  3. FONDAPARINUX [Suspect]
     Active Substance: FONDAPARINUX
     Indication: Embolism
  4. ATORVASTATIN [Concomitant]
  5. FUROSEMIDE [Concomitant]
  6. GLIPIDIZE [Concomitant]
  7. MECLIZINE [Concomitant]
  8. METOPROL TAR [Concomitant]
  9. OMEPRAZOLE [Concomitant]
  10. Q-PAP [Concomitant]

REACTIONS (1)
  - Adverse drug reaction [None]
